FAERS Safety Report 9383373 (Version 3)
Quarter: 2013Q4

REPORT INFORMATION
  Report Type: Report from Study
  Country: US (occurrence: US)
  Receive Date: 20130704
  Receipt Date: 20131023
  Transmission Date: 20140711
  Serious: Yes (Hospitalization)
  Sender: FDA-Public Use
  Company Number: US-MERCK-1306USA014721

PATIENT
  Age: 57 Year
  Sex: Female
  Weight: 102.9 kg

DRUGS (8)
  1. ZOLINZA [Suspect]
     Indication: T-CELL LYMPHOMA
     Dosage: 400 MG, QD
     Route: 048
     Dates: start: 20130607, end: 20130619
  2. ONDANSETRON [Concomitant]
     Dosage: UNK
     Route: 048
  3. BACTRIM DS [Concomitant]
     Indication: URINARY TRACT INFECTION
     Dosage: UNK
     Dates: start: 20130603, end: 20130607
  4. ADVIL [Concomitant]
     Indication: BACK PAIN
     Dosage: UNK
     Dates: start: 2010
  5. FLUOXETINE [Concomitant]
     Indication: DEPRESSION
     Dosage: UNK
     Dates: start: 201303
  6. HYDROXYZINE HYDROCHLORIDE [Concomitant]
     Indication: PRURITUS
     Dosage: UNK
     Dates: start: 20130523
  7. METFORMIN [Concomitant]
     Indication: DIABETES MELLITUS
     Dosage: UNK
     Route: 048
     Dates: start: 201303
  8. ZOFRAN [Concomitant]
     Indication: NAUSEA
     Dosage: UNK
     Dates: start: 20130613

REACTIONS (1)
  - Musculoskeletal chest pain [Recovered/Resolved]
